FAERS Safety Report 5960401-7 (Version None)
Quarter: 2008Q4

REPORT INFORMATION
  Report Type: 
  Country: None (occurrence: None)
  Receive Date: 20081112
  Receipt Date: 20080508
  Transmission Date: 20090506
  Serious: Yes (Hospitalization)
  Sender: FDA-Public Use
  Company Number: US-JNJFOC-20080502520

PATIENT
  Age: 46 Year
  Sex: Female
  Weight: 117.9352 kg

DRUGS (7)
  1. IBUPROFEN [Suspect]
     Indication: DRUG USE FOR UNKNOWN INDICATION
     Dates: end: 20071201
  2. IRON (IRON) [Concomitant]
  3. HYDROCHLOROTHIAZIDE [Concomitant]
  4. WELLBUTRIN (BUPROPION HYDROCHLORIDE) CAPLET [Concomitant]
  5. DIOVAN [Concomitant]
  6. GEODON (ZIPRASIDONE HYDROCHLORIDE) [Concomitant]
  7. TOPAMAX [Concomitant]

REACTIONS (1)
  - GASTRIC HAEMORRHAGE [None]
